FAERS Safety Report 7339550-7 (Version None)
Quarter: 2011Q1

REPORT INFORMATION
  Report Type: 
  Country: None (occurrence: None)
  Receive Date: 20110308
  Receipt Date: 20110218
  Transmission Date: 20110831
  Serious: No
  Sender: FDA-Public Use
  Company Number: US-AMGEN-USASP2011009892

PATIENT
  Age: 78 Year
  Sex: Female

DRUGS (5)
  1. NON-SPECIFIED CHOLESTEROL MEDICATION [Concomitant]
  2. PROLIA [Suspect]
     Indication: OSTEOPOROSIS POSTMENOPAUSAL
     Dosage: UNK UNK, Q6MO
     Dates: start: 20110216
  3. NON-SPECIFIED STEROID INHALER [Concomitant]
  4. NON-SPECIFIED HEART MEDICATION [Concomitant]
  5. CALCIUM [Concomitant]

REACTIONS (2)
  - MUSCULOSKELETAL CHEST PAIN [None]
  - NECK PAIN [None]
